FAERS Safety Report 10079273 (Version 2)
Quarter: 2014Q2

REPORT INFORMATION
  Report Type: Spontaneous
  Country: JP (occurrence: JP)
  Receive Date: 20140415
  Receipt Date: 20140506
  Transmission Date: 20141212
  Serious: Yes (Other)
  Sender: FDA-Public Use
  Company Number: JP-AMGEN-JPNSP2014026958

PATIENT
  Age: 9 Decade
  Sex: Female

DRUGS (1)
  1. ARANESP [Suspect]
     Indication: NEPHROGENIC ANAEMIA
     Dosage: 40 MUG, 1X/2WEEKS
     Route: 058
     Dates: start: 20140219, end: 20140405

REACTIONS (1)
  - Nephrotic syndrome [Recovering/Resolving]
